FAERS Safety Report 4781326-9 (Version None)
Quarter: 2005Q3

REPORT INFORMATION
  Report Type: 
  Country: None (occurrence: None)
  Receive Date: 20050914
  Receipt Date: 20050706
  Transmission Date: 20060218
  Serious: No
  Sender: FDA-Public Use
  Company Number: IND-AE-05-SAN-040

PATIENT
  Age: 79 Year
  Sex: Female
  Weight: 117.9352 kg

DRUGS (3)
  1. SANCTURA [Suspect]
     Indication: HYPERTONIC BLADDER
     Dosage: 20MG BID; ORAL
     Route: 048
     Dates: start: 20050701
  2. VERAPAMIL [Concomitant]
  3. ISOSORBIDE [Concomitant]

REACTIONS (2)
  - CONSTIPATION [None]
  - HEART RATE INCREASED [None]
